FAERS Safety Report 4407556-3 (Version None)
Quarter: 2004Q3

REPORT INFORMATION
  Report Type: 
  Country: None (occurrence: None)
  Receive Date: 20040726
  Receipt Date: 20040210
  Transmission Date: 20050211
  Serious: Yes (Other)
  Sender: FDA-Public Use
  Company Number: US-GLAXOSMITHKLINE-A0497766A

PATIENT
  Age: 77 Year
  Sex: Male

DRUGS (1)
  1. HYCAMTIN [Suspect]
     Route: 042

REACTIONS (4)
  - ANAEMIA [None]
  - BLOOD TEST ABNORMAL [None]
  - BONE MARROW DEPRESSION [None]
  - FATIGUE [None]
